FAERS Safety Report 7835759-4 (Version None)
Quarter: 2011Q4

REPORT INFORMATION
  Report Type: 
  Country: None (occurrence: None)
  Receive Date: 20111024
  Receipt Date: 20111020
  Transmission Date: 20120403
  Serious: Yes (Other)
  Sender: FDA-Public Use
  Company Number: US-PFIZER INC-2011255485

PATIENT
  Sex: Female

DRUGS (1)
  1. PREMARIN [Suspect]
     Dosage: 0.9 MG, UNK

REACTIONS (5)
  - WRONG TECHNIQUE IN DRUG USAGE PROCESS [None]
  - BLOOD GLUCOSE ABNORMAL [None]
  - HYPOTHYROIDISM [None]
  - HYPOTHALAMO-PITUITARY DISORDER [None]
  - INSULIN-LIKE GROWTH FACTOR DECREASED [None]
